FAERS Safety Report 6500494-1 (Version None)
Quarter: 2009Q4

REPORT INFORMATION
  Report Type: 
  Country: None (occurrence: None)
  Receive Date: 20091216
  Receipt Date: 20091205
  Transmission Date: 20100525
  Serious: Yes (Other)
  Sender: FDA-Public Use
  Company Number: PHHY2009JP29317

PATIENT
  Sex: Female

DRUGS (1)
  1. GLEEVEC [Suspect]
     Route: 048

REACTIONS (17)
  - AUTONOMIC NEUROPATHY [None]
  - CHEST DISCOMFORT [None]
  - DIARRHOEA [None]
  - DIZZINESS [None]
  - DYSPNOEA [None]
  - EPISTAXIS [None]
  - FACE OEDEMA [None]
  - GENERALISED OEDEMA [None]
  - HYPOAESTHESIA [None]
  - INCREASED APPETITE [None]
  - MALAISE [None]
  - MUSCLE SPASMS [None]
  - MUSCULOSKELETAL STIFFNESS [None]
  - NOCTURIA [None]
  - OEDEMA PERIPHERAL [None]
  - TRIGGER FINGER [None]
  - WEIGHT INCREASED [None]
